FAERS Safety Report 5879485-X (Version None)
Quarter: 2008Q3

REPORT INFORMATION
  Report Type: 
  Country: None (occurrence: None)
  Receive Date: 20080912
  Receipt Date: 20080829
  Transmission Date: 20090109
  Serious: Yes (Death, Life-Threatening, Other)
  Sender: FDA-Public Use
  Company Number: JP-ELI_LILLY_AND_COMPANY-JP200808006313

PATIENT
  Age: 74 Year
  Sex: Male
  Weight: 62 kg

DRUGS (5)
  1. GEMZAR [Suspect]
     Indication: LUNG SQUAMOUS CELL CARCINOMA STAGE III
     Dosage: 1300 MG, OTHER
     Route: 042
     Dates: start: 20080611, end: 20080716
  2. NAVELBINE [Concomitant]
     Indication: LUNG SQUAMOUS CELL CARCINOMA STAGE III
     Dosage: 30 MG, OTHER
     Route: 042
     Dates: start: 20080611, end: 20080716
  3. ASPIRIN [Concomitant]
     Indication: CEREBRAL INFARCTION
     Dosage: 100 MG DAILY (1/D)
     Route: 048
     Dates: start: 19930101, end: 20080725
  4. KYTRIL [Concomitant]
     Indication: PROPHYLAXIS
     Dosage: 3 MG, OTHER
     Route: 042
     Dates: start: 20080611, end: 20080716
  5. SOLU-CORTEF [Concomitant]
     Indication: PROPHYLAXIS
     Dosage: 100 MG, OTHER
     Route: 042
     Dates: start: 20080611, end: 20080716

REACTIONS (8)
  - ACUTE MYOCARDIAL INFARCTION [None]
  - ANAEMIA [None]
  - DISSEMINATED INTRAVASCULAR COAGULATION [None]
  - INTERSTITIAL LUNG DISEASE [None]
  - PNEUMOCYSTIS JIROVECI PNEUMONIA [None]
  - PNEUMONIA CYTOMEGALOVIRAL [None]
  - PULMONARY ALVEOLAR HAEMORRHAGE [None]
  - RENAL IMPAIRMENT [None]
